FAERS Safety Report 24451595 (Version 2)
Quarter: 2024Q4

REPORT INFORMATION
  Report Type: Report from Study
  Country: FR (occurrence: FR)
  Receive Date: 20241017
  Receipt Date: 20241026
  Transmission Date: 20250115
  Serious: No
  Sender: ABBVIE
  Company Number: FR-JNJFOC-20241034372

PATIENT

DRUGS (1)
  1. IBRUTINIB [Suspect]
     Active Substance: IBRUTINIB
     Indication: Chronic lymphocytic leukaemia
     Route: 048

REACTIONS (1)
  - Sleep apnoea syndrome [Unknown]
